FAERS Safety Report 11975307 (Version 3)
Quarter: 2018Q3

REPORT INFORMATION
  Report Type: Spontaneous
  Country: US (occurrence: US)
  Receive Date: 20160128
  Receipt Date: 20180904
  Transmission Date: 20181010
  Serious: Yes (Hospitalization, Other)
  Sender: FDA-Public Use
  Company Number: US-DSJP-DSU-2015-133863

PATIENT

DRUGS (12)
  1. BENICAR [Suspect]
     Active Substance: OLMESARTAN MEDOXOMIL
     Dosage: 20 MG, QD
     Dates: start: 2013, end: 201511
  2. BENICAR [Suspect]
     Active Substance: OLMESARTAN MEDOXOMIL
     Dosage: 5 MG, UNK
  3. BENICAR [Suspect]
     Active Substance: OLMESARTAN MEDOXOMIL
     Dosage: 20 MG, EVERY ALTERNATE DAY
     Dates: end: 20090225
  4. BENICAR HCT [Suspect]
     Active Substance: HYDROCHLOROTHIAZIDE\OLMESARTAN MEDOXOMIL
     Indication: HYPERTENSION
     Dosage: UNK
     Dates: start: 2003
  5. BENICAR [Suspect]
     Active Substance: OLMESARTAN MEDOXOMIL
     Indication: HYPERTENSION
     Dosage: 20 MG, QD
     Dates: start: 2006, end: 2006
  6. ATENOLOL. [Concomitant]
     Active Substance: ATENOLOL
     Indication: PRODUCT USED FOR UNKNOWN INDICATION
     Dosage: 25 MG, QD
     Dates: start: 2007, end: 2007
  7. BENICAR HCT [Suspect]
     Active Substance: HYDROCHLOROTHIAZIDE\OLMESARTAN MEDOXOMIL
     Dosage: 20?12.5, ONE PER DAY
     Dates: start: 2006
  8. HYDROCODONE [Concomitant]
     Active Substance: HYDROCODONE
     Indication: PRODUCT USED FOR UNKNOWN INDICATION
     Dosage: 7.5/500MG PER DAY
     Dates: start: 2004, end: 2014
  9. TORASEMIDE [Concomitant]
     Active Substance: TORSEMIDE
     Indication: PRODUCT USED FOR UNKNOWN INDICATION
     Dosage: 20 MG, QD
     Dates: start: 2006, end: 2006
  10. KETOROLAC [Concomitant]
     Active Substance: KETOROLAC\KETOROLAC TROMETHAMINE
     Indication: PRODUCT USED FOR UNKNOWN INDICATION
     Dosage: 10 MG, QD
     Dates: start: 2002, end: 2007
  11. BENICAR [Suspect]
     Active Substance: OLMESARTAN MEDOXOMIL
     Dosage: 20 MG, BID
  12. PROPOXYPHENE. [Concomitant]
     Active Substance: PROPOXYPHENE
     Indication: PRODUCT USED FOR UNKNOWN INDICATION
     Dosage: 10?650MG PER DAY
     Dates: start: 1999, end: 2010

REACTIONS (17)
  - Renal colic [Unknown]
  - Intestinal resection [Unknown]
  - Diverticulum [Unknown]
  - Gastrooesophageal reflux disease [Not Recovered/Not Resolved]
  - Gastrointestinal bacterial overgrowth [Unknown]
  - Haemorrhoids [Unknown]
  - Diverticulitis [Unknown]
  - Irritable bowel syndrome [Recovered/Resolved]
  - Sprue-like enteropathy [Not Recovered/Not Resolved]
  - Acute kidney injury [Unknown]
  - Peptic ulcer [Unknown]
  - Renal cyst [Unknown]
  - Gastrointestinal tract adenoma [Recovered/Resolved]
  - Gastrointestinal haemorrhage [Unknown]
  - Coeliac disease [Recovered/Resolved]
  - Hepatic steatosis [Unknown]
  - Drug administration error [Unknown]

NARRATIVE: CASE EVENT DATE: 20030123
